FAERS Safety Report 10163057 (Version 1)
Quarter: 2014Q2

REPORT INFORMATION
  Report Type: Spontaneous
  Country: DK (occurrence: DK)
  Receive Date: 20140509
  Receipt Date: 20140509
  Transmission Date: 20141212
  Serious: Yes (Disabling)
  Sender: FDA-Public Use
  Company Number: PHHY2014DK053683

PATIENT
  Age: 75 Year
  Sex: Female
  Weight: 44 kg

DRUGS (8)
  1. ALENDRONATE SANDOZ [Suspect]
     Indication: OSTEOPOROSIS
     Dosage: 70 MG, QW
     Route: 048
     Dates: start: 2008
  2. CLOPIDOGREL [Concomitant]
     Indication: ARTERIOSCLEROSIS
  3. LOSARTANKALIUM [Concomitant]
     Indication: HYPERTENSION
  4. SIMVASTATIN [Concomitant]
     Indication: HYPERCHOLESTEROLAEMIA
  5. AMLODIPIN [Concomitant]
     Indication: HYPERTENSION
  6. LANSOPRAZOLE [Concomitant]
     Indication: GASTRIC PH DECREASED
  7. OLANZAPIN [Concomitant]
     Indication: DEPRESSION
  8. SERTRALIN [Concomitant]
     Indication: DEPRESSION

REACTIONS (4)
  - Osteonecrosis of jaw [Not Recovered/Not Resolved]
  - Osteomyelitis [Unknown]
  - Pain in jaw [Unknown]
  - Impaired healing [Unknown]
